FAERS Safety Report 4937372-5 (Version None)
Quarter: 2006Q1

REPORT INFORMATION
  Report Type: 
  Country: None (occurrence: None)
  Receive Date: 20060306
  Receipt Date: 20060216
  Transmission Date: 20060701
  Serious: Yes (Other)
  Sender: FDA-Public Use
  Company Number: ENTC2006-0051

PATIENT
  Sex: Male

DRUGS (4)
  1. STALEVO 150 [Suspect]
     Indication: PARKINSON'S DISEASE
     Dosage: 1800 MG, 6 IN 1 D, ORAL
     Route: 048
     Dates: start: 20030101
  2. OXYCODONE [Concomitant]
  3. OXYTROL [Concomitant]
  4. HYTRIN [Concomitant]

REACTIONS (1)
  - THORACIC VERTEBRAL FRACTURE [None]
